FAERS Safety Report 15241138 (Version 1)
Quarter: 2018Q3

REPORT INFORMATION
  Report Type: Spontaneous
  Country: US (occurrence: US)
  Receive Date: 20180711
  Receipt Date: 20180711
  Transmission Date: 20181010
  Serious: Yes (Death)
  Sender: FDA-Public Use
  Company Number: None

PATIENT
  Sex: Male
  Weight: 74.5 kg

DRUGS (2)
  1. LEUPOROLIDE ACETATE [Suspect]
     Active Substance: LEUPROLIDE ACETATE
     Dates: end: 20180330
  2. CASODEX [Suspect]
     Active Substance: BICALUTAMIDE
     Dates: end: 20180618

REACTIONS (7)
  - Pneumonia [None]
  - Hypotension [None]
  - Supraventricular tachycardia [None]
  - Laryngeal squamous cell carcinoma [None]
  - Malignant neoplasm progression [None]
  - Pyrexia [None]
  - Cough [None]

NARRATIVE: CASE EVENT DATE: 20180623
